FAERS Safety Report 4652360-4 (Version None)
Quarter: 2005Q2

REPORT INFORMATION
  Report Type: 
  Country: None (occurrence: None)
  Receive Date: 20050504
  Receipt Date: 20050503
  Transmission Date: 20051028
  Serious: Yes (Other)
  Sender: FDA-Public Use
  Company Number: 2005008013

PATIENT
  Age: 55 Year
  Sex: Male
  Weight: 100 kg

DRUGS (4)
  1. LAMICTAL [Suspect]
     Route: 048
  2. ALCOHOL [Suspect]
     Route: 048
  3. NEFADAR [Suspect]
     Route: 048
  4. REMERGIL [Suspect]
     Route: 048

REACTIONS (3)
  - ALCOHOL POISONING [None]
  - FATIGUE [None]
  - SUICIDE ATTEMPT [None]
